FAERS Safety Report 20057992 (Version 10)
Quarter: 2022Q4

REPORT INFORMATION
  Report Type: Spontaneous
  Country: US (occurrence: US)
  Receive Date: 20211111
  Receipt Date: 20221230
  Transmission Date: 20230112
  Serious: No
  Sender: FDA-Public Use
  Company Number: US-PFIZER INC-202101495407

PATIENT
  Age: 58 Year
  Sex: Female

DRUGS (10)
  1. IBRANCE [Suspect]
     Active Substance: PALBOCICLIB
     Indication: Breast cancer metastatic
     Dosage: 100 MG, CYCLIC (TAKE 1 TABLET BY MOUTH EVERY DAY FOR 21 DAYS THEN HOLD FOR 7 DAYS)
     Route: 048
     Dates: start: 20200901
  2. IBRANCE [Suspect]
     Active Substance: PALBOCICLIB
     Dosage: 100 MG, CYCLIC (TAKE 1 TABLET BY MOUTH EVERY DAY FOR 21 DAYS THEN HOLD FOR 7 DAYS)
     Route: 048
     Dates: start: 20200901
  3. GABAPENTIN [Concomitant]
     Active Substance: GABAPENTIN
     Dosage: 300 MG
  4. LETROZOLE [Concomitant]
     Active Substance: LETROZOLE
     Dosage: 2.5 MG
  5. METAXALONE [Concomitant]
     Active Substance: METAXALONE
     Dosage: 800 MG
  6. METHYLPREDNISOLONE [Concomitant]
     Active Substance: METHYLPREDNISOLONE
     Dosage: 4 MG
  7. OMEPRAZOLE [Concomitant]
     Active Substance: OMEPRAZOLE
     Dosage: 40 MG
  8. PROCHLORPERAZINE MALEATE [Concomitant]
     Active Substance: PROCHLORPERAZINE MALEATE
     Dosage: 10 MG
  9. SYNTHROID [Concomitant]
     Active Substance: LEVOTHYROXINE SODIUM
     Dosage: 100 UG
  10. XANAX [Concomitant]
     Active Substance: ALPRAZOLAM
     Dosage: 0.5 MG

REACTIONS (1)
  - Fatigue [Not Recovered/Not Resolved]
